FAERS Safety Report 7556627-1 (Version None)
Quarter: 2011Q2

REPORT INFORMATION
  Report Type: 
  Country: None (occurrence: None)
  Receive Date: 20110620
  Receipt Date: 20110609
  Transmission Date: 20111010
  Serious: Yes (Other)
  Sender: FDA-Public Use
  Company Number: JP-AMGEN-JPNSP2011030745

PATIENT
  Sex: Male

DRUGS (2)
  1. VECTIBIX [Suspect]
     Indication: LARGE INTESTINE CARCINOMA
     Dosage: 6 MG/KG, Q2WK
     Route: 041
  2. VECTIBIX [Suspect]
     Route: 041

REACTIONS (4)
  - DIARRHOEA HAEMORRHAGIC [None]
  - ACNE [None]
  - FAECES DISCOLOURED [None]
  - DECREASED APPETITE [None]
